FAERS Safety Report 15402183 (Version 1)
Quarter: 2018Q3

REPORT INFORMATION
  Report Type: Spontaneous
  Country: GB (occurrence: GB)
  Receive Date: 20180919
  Receipt Date: 20180919
  Transmission Date: 20181010
  Serious: Yes (Other)
  Sender: FDA-Public Use
  Company Number: GB-PFIZER INC-2018355592

PATIENT
  Age: 68 Year
  Sex: Male

DRUGS (3)
  1. PREDNISOLONE. [Suspect]
     Active Substance: PREDNISOLONE
     Indication: SARCOIDOSIS
     Dosage: 10 MG, 1X/DAY
     Route: 065
     Dates: start: 2001
  2. METHOTREXATE SODIUM. [Suspect]
     Active Substance: METHOTREXATE SODIUM
     Indication: SARCOIDOSIS
     Dosage: 20 MG, WEEKLY
     Route: 065
     Dates: start: 2001
  3. ADALIMUMAB [Suspect]
     Active Substance: ADALIMUMAB
     Indication: SARCOIDOSIS
     Dosage: 40 MG, (EVERY 2 WEEKS)
     Route: 065
     Dates: start: 2014

REACTIONS (4)
  - Blindness [Not Recovered/Not Resolved]
  - Eye infection staphylococcal [Not Recovered/Not Resolved]
  - Endophthalmitis [Not Recovered/Not Resolved]
  - Product use in unapproved indication [Unknown]

NARRATIVE: CASE EVENT DATE: 2001
